FAERS Safety Report 20075556 (Version 3)
Quarter: 2021Q4

REPORT INFORMATION
  Report Type: Report from Study
  Country: US (occurrence: US)
  Receive Date: 20211116
  Receipt Date: 20211218
  Transmission Date: 20220303
  Serious: Yes (Hospitalization)
  Sender: FDA-Public Use
  Company Number: US-TAKEDA-2021TUS071183

PATIENT
  Sex: Male

DRUGS (8)
  1. TEDUGLUTIDE [Suspect]
     Active Substance: TEDUGLUTIDE
     Indication: Short-bowel syndrome
     Dosage: 0.81 MILLIGRAM, QD
     Route: 058
     Dates: start: 20210830
  2. TEDUGLUTIDE [Suspect]
     Active Substance: TEDUGLUTIDE
     Indication: Short-bowel syndrome
     Dosage: 0.81 MILLIGRAM, QD
     Route: 058
     Dates: start: 20210830
  3. TEDUGLUTIDE [Suspect]
     Active Substance: TEDUGLUTIDE
     Indication: Short-bowel syndrome
     Dosage: 0.81 MILLIGRAM, QD
     Route: 058
     Dates: start: 20210830
  4. TEDUGLUTIDE [Suspect]
     Active Substance: TEDUGLUTIDE
     Indication: Short-bowel syndrome
     Dosage: 0.81 MILLIGRAM, QD
     Route: 058
     Dates: start: 20210830
  5. TEDUGLUTIDE [Suspect]
     Active Substance: TEDUGLUTIDE
     Dosage: 0.81 MILLIGRAM, QD
     Route: 058
     Dates: start: 202108
  6. TEDUGLUTIDE [Suspect]
     Active Substance: TEDUGLUTIDE
     Dosage: 0.81 MILLIGRAM, QD
     Route: 058
     Dates: start: 202108
  7. TEDUGLUTIDE [Suspect]
     Active Substance: TEDUGLUTIDE
     Dosage: 0.81 MILLIGRAM, QD
     Route: 058
     Dates: start: 202108
  8. TEDUGLUTIDE [Suspect]
     Active Substance: TEDUGLUTIDE
     Dosage: 0.81 MILLIGRAM, QD
     Route: 058
     Dates: start: 202108

REACTIONS (2)
  - Haemoglobin decreased [Unknown]
  - Weight gain poor [Unknown]
